FAERS Safety Report 6815430-8 (Version None)
Quarter: 2010Q3

REPORT INFORMATION
  Report Type: 
  Country: None (occurrence: None)
  Receive Date: 20100702
  Receipt Date: 20100615
  Transmission Date: 20110219
  Serious: Yes (Life-Threatening, Hospitalization, Disabling, Other)
  Sender: FDA-Public Use
  Company Number: PHHY2010GB28477

PATIENT
  Sex: Male

DRUGS (4)
  1. ZOMETA [Suspect]
     Indication: PROSTATE CANCER METASTATIC
     Dosage: UNK
     Route: 042
  2. CALCIUM GLUCONATE [Concomitant]
     Dosage: 12 DOSES OF 10% CALCIUM GLUCONATE 10 ML
  3. CALCIUM CHLORIDE [Concomitant]
     Dosage: 2 DOSES
  4. CALCIDOL [Concomitant]
     Dosage: 1 DOSE

REACTIONS (6)
  - CONFUSIONAL STATE [None]
  - CONVULSION [None]
  - DISEASE PROGRESSION [None]
  - HYPOCALCAEMIA [None]
  - PARAESTHESIA [None]
  - TREMOR [None]
